FAERS Safety Report 14561502 (Version 1)
Quarter: 2018Q1

REPORT INFORMATION
  Report Type: Spontaneous
  Country: FR (occurrence: FR)
  Receive Date: 20180222
  Receipt Date: 20180222
  Transmission Date: 20180509
  Serious: Yes (Other)
  Sender: FDA-Public Use
  Company Number: FR-AUROBINDO-AUR-APL-2018-008545

PATIENT
  Age: 42 Year
  Sex: Male

DRUGS (2)
  1. NIFLURIL /06114101/ [Suspect]
     Active Substance: MORNIFLUMATE\NIFLUMIC ACID
     Indication: UPPER RESPIRATORY TRACT INFECTION
     Dosage: 1 DF, IN TOTAL
     Route: 048
     Dates: start: 20140101
  2. AMOXICILLIN. [Suspect]
     Active Substance: AMOXICILLIN
     Indication: UPPER RESPIRATORY TRACT INFECTION
     Dosage: 1 DF, IN TOTAL
     Route: 048
     Dates: start: 20140101

REACTIONS (3)
  - Face oedema [Recovered/Resolved]
  - Localised oedema [Recovered/Resolved]
  - Pruritus [Recovered/Resolved]

NARRATIVE: CASE EVENT DATE: 20140101
